FAERS Safety Report 14984508 (Version 2)
Quarter: 2018Q2

REPORT INFORMATION
  Report Type: Spontaneous
  Country: BR (occurrence: BR)
  Receive Date: 20180607
  Receipt Date: 20180628
  Transmission Date: 20180711
  Serious: Yes (Death, Other)
  Sender: FDA-Public Use
  Company Number: BR-PFIZER INC-2018164820

PATIENT
  Age: 66 Year
  Sex: Male

DRUGS (6)
  1. DOXORUBICIN HCL [Suspect]
     Active Substance: DOXORUBICIN HYDROCHLORIDE
     Indication: DEDIFFERENTIATED LIPOSARCOMA
     Dosage: 75 MG/M2, CYCLIC
  2. IFOSFAMIDE. [Suspect]
     Active Substance: IFOSFAMIDE
     Indication: DESMOID TUMOUR
  3. DOXORUBICIN HCL [Suspect]
     Active Substance: DOXORUBICIN HYDROCHLORIDE
     Indication: DESMOID TUMOUR
  4. SIFROL [Concomitant]
     Active Substance: PRAMIPEXOLE
     Dosage: 0.25 MG, UNK
  5. IFOSFAMIDE. [Suspect]
     Active Substance: IFOSFAMIDE
     Indication: DEDIFFERENTIATED LIPOSARCOMA
     Dosage: 3 MG/M2, FOR 3 DAYS
  6. LEXAPRO [Concomitant]
     Active Substance: ESCITALOPRAM OXALATE
     Dosage: 10 MG, DAILY

REACTIONS (2)
  - Neoplasm progression [Unknown]
  - Sepsis [Fatal]
